FAERS Safety Report 26062187 (Version 1)
Quarter: 2025Q4

REPORT INFORMATION
  Report Type: Report from Study
  Country: CA (occurrence: CA)
  Receive Date: 20251119
  Receipt Date: 20251119
  Transmission Date: 20260118
  Serious: Yes (Hospitalization)
  Sender: ALEXION PHARMACEUTICALS
  Company Number: CA-AstraZeneca-CH-00994092A

PATIENT
  Sex: Female

DRUGS (8)
  1. FASENRA [Suspect]
     Active Substance: BENRALIZUMAB
     Indication: Asthma
  2. FASENRA [Suspect]
     Active Substance: BENRALIZUMAB
  3. TEZSPIRE [Concomitant]
     Active Substance: TEZEPELUMAB-EKKO
     Route: 065
  4. ALVESCO [Concomitant]
     Active Substance: CICLESONIDE
     Dosage: DOSE: 2INH 2X/JOUR - 200 MCG
     Route: 065
  5. CORTISONE [Concomitant]
     Active Substance: CORTISONE
     Route: 065
  6. SYMBICORT [Concomitant]
     Active Substance: BUDESONIDE\FORMOTEROL FUMARATE DIHYDRATE
     Dosage: DOSE: 2 INH 3X A DAY - 200MCG,
  7. SINGULAIR [Concomitant]
     Active Substance: MONTELUKAST SODIUM
     Dosage: 1 CO./JOUR - 10MG,
     Route: 065
  8. Reactin [Concomitant]
     Dosage: DOSE: 1/2 TABLET 2X DAY -20 MG
     Route: 065

REACTIONS (1)
  - Appendicitis [Unknown]
